FAERS Safety Report 9171502 (Version 1)
Quarter: 2013Q1

REPORT INFORMATION
  Report Type: Spontaneous
  Country: US (occurrence: US)
  Receive Date: 20130319
  Receipt Date: 20130319
  Transmission Date: 20140127
  Serious: Yes (Other)
  Sender: FDA-Public Use
  Company Number: US-ACTAVIS-EU-(XML)-2013-03776

PATIENT
  Age: 48 Year
  Sex: Female

DRUGS (29)
  1. LIDOCAINE HYDROCHLORIDE (WATSON LABORATORIES) [Suspect]
     Indication: ABDOMINAL PAIN
     Dosage: UNK, DAILY
     Route: 062
  2. LIDOCAINE HYDROCHLORIDE (WATSON LABORATORIES) [Suspect]
     Indication: BACK PAIN
     Dosage: 100 MG, SINGLE
     Route: 042
  3. METHADONE [Concomitant]
     Indication: ABDOMINAL PAIN
     Route: 065
  4. METHADONE [Concomitant]
     Indication: BACK PAIN
  5. HYDROMORPHONE [Concomitant]
     Indication: ABDOMINAL PAIN
     Route: 065
  6. HYDROMORPHONE [Concomitant]
     Indication: BACK PAIN
  7. FUROSEMIDE [Concomitant]
     Indication: PRODUCT USED FOR UNKNOWN INDICATION
     Route: 065
  8. ESCITALOPRAM [Concomitant]
     Indication: PRODUCT USED FOR UNKNOWN INDICATION
     Route: 065
  9. PANTOPRAZOLE [Concomitant]
     Indication: PRODUCT USED FOR UNKNOWN INDICATION
     Route: 065
  10. SUMATRIPTAN [Concomitant]
     Indication: PRODUCT USED FOR UNKNOWN INDICATION
     Route: 065
  11. TEMAZEPAM [Concomitant]
     Indication: PRODUCT USED FOR UNKNOWN INDICATION
     Route: 065
  12. MIDAZOLAM [Concomitant]
     Indication: INTESTINAL ADHESION LYSIS
     Route: 065
  13. MIDAZOLAM [Concomitant]
     Indication: SMALL INTESTINAL RESECTION
  14. FENTANYL [Concomitant]
     Indication: INTESTINAL ADHESION LYSIS
     Route: 065
  15. FENTANYL [Concomitant]
     Indication: SMALL INTESTINAL RESECTION
  16. PROPOFOL [Concomitant]
     Indication: INTESTINAL ADHESION LYSIS
     Route: 065
  17. PROPOFOL [Concomitant]
     Indication: SMALL INTESTINAL RESECTION
  18. SUCCINYLCHOLINE [Concomitant]
     Indication: INTESTINAL ADHESION LYSIS
     Route: 065
  19. SUCCINYLCHOLINE [Concomitant]
     Indication: SMALL INTESTINAL RESECTION
  20. CIPROFLOXACIN [Concomitant]
     Indication: INTESTINAL ADHESION LYSIS
     Route: 065
  21. CIPROFLOXACIN [Concomitant]
     Indication: SMALL INTESTINAL RESECTION
  22. METRONIDAZOLE [Concomitant]
     Indication: INTESTINAL ADHESION LYSIS
     Route: 065
  23. METRONIDAZOLE [Concomitant]
     Indication: SMALL INTESTINAL RESECTION
  24. VECURONIUM [Concomitant]
     Indication: INTESTINAL ADHESION LYSIS
     Route: 065
  25. VECURONIUM [Concomitant]
     Indication: SMALL INTESTINAL RESECTION
  26. DESFLURANE [Concomitant]
     Indication: INTESTINAL ADHESION LYSIS
     Route: 065
  27. DESFLURANE [Concomitant]
     Indication: SMALL INTESTINAL RESECTION
  28. KETAMINE [Concomitant]
     Indication: INTESTINAL ADHESION LYSIS
     Route: 065
  29. KETAMINE [Concomitant]
     Indication: SMALL INTESTINAL RESECTION

REACTIONS (1)
  - Methaemoglobinaemia [Recovered/Resolved]
